FAERS Safety Report 10412056 (Version 1)
Quarter: 2014Q3

REPORT INFORMATION
  Report Type: Spontaneous
  Country: US (occurrence: None)
  Receive Date: 20140826
  Receipt Date: 20140826
  Transmission Date: 20150326
  Serious: Yes (Hospitalization)
  Sender: FDA-Public Use
  Company Number: None

PATIENT
  Age: 56 Year
  Sex: Male
  Weight: 90.7 kg

DRUGS (1)
  1. INTRON A [Suspect]
     Active Substance: INTERFERON ALFA-2B
     Dates: end: 20130114

REACTIONS (5)
  - Suicidal ideation [None]
  - Confusional state [None]
  - Mental status changes [None]
  - Depression [None]
  - Self injurious behaviour [None]

NARRATIVE: CASE EVENT DATE: 20130130
